FAERS Safety Report 8270456-5 (Version None)
Quarter: 2012Q2

REPORT INFORMATION
  Report Type: 
  Country: None (occurrence: None)
  Receive Date: 20120405
  Receipt Date: 20120327
  Transmission Date: 20120825
  Serious: Yes (Hospitalization, Other)
  Sender: FDA-Public Use
  Company Number: 2011PL000075

PATIENT
  Sex: Female
  Weight: 54.7945 kg

DRUGS (11)
  1. DARBEPOETIN ALFA (DARBEPOETIN) [Suspect]
     Indication: RENAL FAILURE CHRONIC
     Dosage: 40; SC
     Route: 058
     Dates: start: 20100914, end: 20101207
  2. PERINDOPRIL ERBUMINE [Concomitant]
  3. MYCOPHENOLATE MOFETIL (CELLCEPT) [Concomitant]
  4. PRESERVISION LUTEIN EYE VITA, +MIN. SUP. SOFTG [Concomitant]
  5. BERIVINE [Concomitant]
  6. ALLOPURINOL [Suspect]
     Indication: PRODUCT USED FOR UNKNOWN INDICATION
     Dosage: 100 MG
  7. NEORAL [Suspect]
     Indication: HEART TRANSPLANT
     Dosage: 140 MG; PO
     Route: 048
     Dates: start: 20020101
  8. ROCALTROL [Concomitant]
  9. ASPIRIN [Concomitant]
  10. LIPITOR [Concomitant]
  11. BISOPROLOL FUMARATE [Concomitant]

REACTIONS (1)
  - HAEMOGLOBIN DECREASED [None]
